FAERS Safety Report 10444043 (Version 1)
Quarter: 2014Q3

REPORT INFORMATION
  Report Type: Spontaneous
  Country: US (occurrence: US)
  Receive Date: 20140910
  Receipt Date: 20140910
  Transmission Date: 20150326
  Serious: Yes (Hospitalization, Other)
  Sender: FDA-Public Use
  Company Number: US-SUN PHARMACEUTICAL INDUSTRIES LTD-2014SUN02013

PATIENT
  Age: 77 Year
  Sex: Male

DRUGS (10)
  1. WARFARIN [Concomitant]
     Active Substance: WARFARIN
     Dosage: 4 MG, (ALTERNATE DAYS)
  2. HYDROCHLOROTHIAZIDE-LISINOPRIL 12.5-20MGQD [Concomitant]
     Dosage: 12.5/20 MG/DAY
  3. TRAZODONE [Concomitant]
     Active Substance: TRAZODONE HYDROCHLORIDE
     Dosage: 50 MG, QD (AT BED TIME)
  4. DIGOXIN 0.25 MG TABLETS [Interacting]
     Active Substance: DIGOXIN
     Dosage: 125 MCG, QD
     Route: 065
  5. ATENOLOL. [Concomitant]
     Active Substance: ATENOLOL
     Dosage: 150 MG, QD
  6. OMEPRAZOLE. [Concomitant]
     Active Substance: OMEPRAZOLE
     Dosage: 40 MG, QD
  7. DIGOXIN 0.25 MG TABLETS [Suspect]
     Active Substance: DIGOXIN
     Indication: ATRIAL FIBRILLATION
     Dosage: 250 MCG, QD
     Route: 065
  8. DRONEDARONE [Interacting]
     Active Substance: DRONEDARONE
     Indication: ATRIAL FIBRILLATION
     Dosage: 400 MG, BID
     Route: 065
  9. SUCRALFATE. [Concomitant]
     Active Substance: SUCRALFATE
     Dosage: 1 G, QID
  10. WARFARIN [Concomitant]
     Active Substance: WARFARIN
     Dosage: 3 MG, (ALTERNATE DAYS)

REACTIONS (3)
  - Atrial fibrillation [Recovering/Resolving]
  - Toxicity to various agents [Recovering/Resolving]
  - Drug interaction [Recovering/Resolving]
